FAERS Safety Report 9026980 (Version 1)
Quarter: 2013Q1

REPORT INFORMATION
  Report Type: Spontaneous
  Country: BR (occurrence: BR)
  Receive Date: 20130123
  Receipt Date: 20130123
  Transmission Date: 20140127
  Serious: Yes (Other)
  Sender: FDA-Public Use
  Company Number: BR-ELI_LILLY_AND_COMPANY-BR201301003559

PATIENT
  Sex: Female
  Weight: 51 kg

DRUGS (9)
  1. HUMULIN NPH [Suspect]
     Indication: DIABETES MELLITUS
     Dosage: 9 IU, EACH MORNING
     Route: 058
  2. HUMULIN NPH [Suspect]
     Dosage: 6 IU, QD
     Route: 058
  3. GLIFAGE [Concomitant]
     Indication: DIABETES MELLITUS
     Dosage: UNK, UNKNOWN
     Route: 065
  4. SIFROL [Concomitant]
     Indication: TREMOR
     Dosage: UNK, UNKNOWN
     Route: 065
  5. ENALAPRIL [Concomitant]
     Indication: HYPERTENSION
     Dosage: UNK, UNKNOWN
     Route: 065
  6. PROPANOLOL [Concomitant]
     Indication: TREMOR
     Dosage: UNK, UNKNOWN
     Route: 065
  7. AAS [Concomitant]
     Indication: BLOOD DISORDER
     Dosage: UNK, UNKNOWN
     Route: 065
  8. GARDENAL [Concomitant]
     Dosage: UNK, UNKNOWN
     Route: 065
  9. PRIMIDONE [Concomitant]
     Dosage: UNK, UNKNOWN
     Route: 065

REACTIONS (2)
  - Cataract [Unknown]
  - Visual impairment [Unknown]
